FAERS Safety Report 6247080-9 (Version None)
Quarter: 2009Q2

REPORT INFORMATION
  Report Type: 
  Country: None (occurrence: None)
  Receive Date: 20090626
  Receipt Date: 20090622
  Transmission Date: 20091009
  Serious: Yes (Death, Hospitalization, Other)
  Sender: FDA-Public Use
  Company Number: US-TEVA-199404USA

PATIENT
  Age: 64 Year
  Sex: Male

DRUGS (11)
  1. WARFARIN SODIUM TABLET 1MG, 2MG, 2.5MG, 3MG, 4MG, 5MG,6MG, 7.5MG, 10MG [Suspect]
     Dosage: 5 MG ALTERNATING WITH 2.5 MG
  2. INFLUENZA VIRUS VACCINE POLYVALENT [Interacting]
  3. CELECOXIB [Concomitant]
  4. COMBIVENT [Concomitant]
  5. DILTIAZEM [Concomitant]
  6. METFORMIN [Concomitant]
  7. HYZAAR [Concomitant]
  8. ESCITALOPRAM [Concomitant]
  9. LANSOPRAZOLE [Concomitant]
  10. PROPRANOLOL HYDROCHLORIDE [Concomitant]
  11. INEGY [Concomitant]

REACTIONS (2)
  - DRUG INTERACTION [None]
  - HAEMORRHAGE INTRACRANIAL [None]
